FAERS Safety Report 5554938-2 (Version None)
Quarter: 2007Q4

REPORT INFORMATION
  Report Type: 
  Country: None (occurrence: None)
  Receive Date: 20071213
  Receipt Date: 20071207
  Transmission Date: 20080405
  Serious: Yes (Disabling)
  Sender: FDA-Public Use
  Company Number: JP-ASTRAZENECA-2007AP06468

PATIENT
  Age: 82 Year
  Sex: Male
  Weight: 67 kg

DRUGS (11)
  1. ZOLADEX [Suspect]
     Indication: PROSTATE CANCER
     Route: 058
     Dates: start: 20040302, end: 20070905
  2. ZOLADEX [Suspect]
     Route: 058
     Dates: start: 20030815, end: 20040203
  3. CASODEX TABLET [Concomitant]
     Indication: PROSTATE CANCER
     Route: 048
     Dates: start: 20030815
  4. TRANDATE [Concomitant]
     Indication: HYPERTENSION
     Route: 048
  5. BLOPRESS [Concomitant]
     Indication: HYPERTENSION
     Route: 048
  6. AMLODIN [Concomitant]
     Indication: HYPERTENSION
     Route: 048
  7. ANOPROLIN [Concomitant]
     Indication: HYPERURICAEMIA
     Route: 048
  8. ALFAROL [Concomitant]
     Indication: HYPOCALCAEMIA
     Route: 048
  9. SIMVASTATIN [Concomitant]
     Indication: HYPERLIPIDAEMIA
     Route: 048
  10. CALTAN [Concomitant]
     Indication: HYPERPHOSPHATAEMIA
     Route: 048
  11. HALCION [Concomitant]
     Indication: INSOMNIA
     Route: 048

REACTIONS (1)
  - INTERSTITIAL LUNG DISEASE [None]
